FAERS Safety Report 9725250 (Version 1)
Quarter: 2013Q4

REPORT INFORMATION
  Report Type: Spontaneous
  Country: US (occurrence: None)
  Receive Date: 20131202
  Receipt Date: 20131202
  Transmission Date: 20140711
  Serious: Yes (Life-Threatening, Hospitalization, Disabling)
  Sender: FDA-Public Use
  Company Number: None

PATIENT
  Age: 65 Year
  Sex: Female
  Weight: 58.97 kg

DRUGS (1)
  1. ALENDRONATE [Suspect]
     Indication: OSTEOPOROSIS
     Dosage: 1 PILL WEEKLY TAKEN BY MOUTH
     Route: 048
     Dates: start: 20081114, end: 20130428

REACTIONS (3)
  - Fall [None]
  - Pain in jaw [None]
  - Femur fracture [None]
